FAERS Safety Report 17927832 (Version 1)
Quarter: 2020Q2

REPORT INFORMATION
  Report Type: Spontaneous
  Country: US (occurrence: NL)
  Receive Date: 20200623
  Receipt Date: 20200623
  Transmission Date: 20200714
  Serious: Yes (Death, Other)
  Sender: FDA-Public Use
  Company Number: US-SUN PHARMACEUTICAL INDUSTRIES LTD-2020R1-250577

PATIENT
  Age: 17 Year
  Sex: Male

DRUGS (2)
  1. ISOSORBIDE MONONITRATE. [Suspect]
     Active Substance: ISOSORBIDE MONONITRATE
     Indication: PRODUCT USED FOR UNKNOWN INDICATION
     Dosage: 20 MILLIGRAM, TID
     Route: 048
  2. CEFPROZIL. [Concomitant]
     Active Substance: CEFPROZIL
     Indication: ACUTE SINUSITIS
     Dosage: 500 MILLIGRAM, BID
     Route: 048

REACTIONS (3)
  - Wrong product administered [Unknown]
  - Incorrect dose administered [Unknown]
  - Completed suicide [Fatal]
